FAERS Safety Report 7548921-5 (Version None)
Quarter: 2011Q2

REPORT INFORMATION
  Report Type: 
  Country: None (occurrence: None)
  Receive Date: 20110615
  Receipt Date: 20110608
  Transmission Date: 20111010
  Serious: Yes (Hospitalization)
  Sender: FDA-Public Use
  Company Number: DE-SANOFI-AVENTIS-2011SA032690

PATIENT
  Age: 65 Year
  Sex: Female
  Weight: 64.5 kg

DRUGS (11)
  1. ANTI-ASTHMATICS [Concomitant]
     Route: 055
  2. DREISAFER [Concomitant]
     Route: 048
  3. DOCETAXEL [Suspect]
     Indication: BREAST CANCER
     Route: 041
  4. DEXAMETHASONE [Suspect]
     Dosage: PO/IV
     Dates: start: 20110505, end: 20110505
  5. DEXAMETHASONE [Suspect]
     Indication: PREMEDICATION
     Route: 048
     Dates: start: 20110504, end: 20110504
  6. SIMVASTATIN [Concomitant]
     Route: 048
  7. DOCETAXEL [Suspect]
     Route: 041
     Dates: start: 20110505, end: 20110505
  8. DEXAMETHASONE [Suspect]
     Dosage: PO/IV
     Route: 048
     Dates: start: 20110506, end: 20110506
  9. NEULASTA [Suspect]
     Route: 065
  10. PANTOPRAZOLE [Concomitant]
     Indication: PREMEDICATION
     Route: 048
  11. METOCLOPRAMIDE [Concomitant]
     Indication: PREMEDICATION
     Route: 048
     Dates: start: 20110506, end: 20110507

REACTIONS (6)
  - BRAIN STEM SYNDROME [None]
  - ATAXIA [None]
  - OPHTHALMOPLEGIA [None]
  - PARAESTHESIA [None]
  - DYSARTHRIA [None]
  - DYSGEUSIA [None]
